FAERS Safety Report 5887204-6 (Version None)
Quarter: 2008Q3

REPORT INFORMATION
  Report Type: 
  Country: None (occurrence: None)
  Receive Date: 20080915
  Receipt Date: 20080909
  Transmission Date: 20090109
  Serious: Yes (Life-Threatening)
  Sender: FDA-Public Use
  Company Number: 2008-183307-NL

PATIENT
  Age: 69 Year
  Sex: Female

DRUGS (5)
  1. ROCURONIUM BROMIDE [Suspect]
     Dosage: 60 MG, ONCE; INTRAVENOUS (NOS)
     Route: 042
     Dates: start: 20080122, end: 20080122
  2. CEFAZOLIN [Suspect]
     Dosage: 1 G ONCE; INTRAVENOUS (NOS)
     Route: 042
     Dates: start: 20080122, end: 20080122
  3. FENTANYL [Suspect]
     Dosage: 100 DF ONCE;
     Dates: start: 20080122, end: 20080122
  4. ALFENTANIL [Suspect]
     Dosage: 2 MG ONCE; INTRAVENOUS (NOS)
     Dates: start: 20080122, end: 20080122
  5. PROPOFOL [Suspect]
     Dosage: 100 MG ONCE; INTRAVENOUS (NOS)
     Route: 042
     Dates: start: 20080122, end: 20080122

REACTIONS (2)
  - CARDIAC ARREST [None]
  - GRAND MAL CONVULSION [None]
